FAERS Safety Report 5841148-4 (Version None)
Quarter: 2008Q3

REPORT INFORMATION
  Report Type: 
  Country: None (occurrence: None)
  Receive Date: 20080807
  Receipt Date: 20080807
  Transmission Date: 20090109
  Serious: Yes (Other)
  Sender: FDA-Public Use
  Company Number: None

PATIENT
  Sex: Male
  Weight: 104.3273 kg

DRUGS (1)
  1. VANCOMYCIN [Suspect]
     Indication: POSTOPERATIVE WOUND INFECTION
     Dosage: 1000MG EVERY 12 HOURS IV
     Route: 042
     Dates: start: 20080626, end: 20080702

REACTIONS (1)
  - DRUG HYPERSENSITIVITY [None]
